FAERS Safety Report 21788359 (Version 2)
Quarter: 2023Q1

REPORT INFORMATION
  Report Type: Spontaneous
  Country: DE (occurrence: DE)
  Receive Date: 20221228
  Receipt Date: 20230119
  Transmission Date: 20230417
  Serious: No
  Sender: FDA-Public Use
  Company Number: DE-PFIZER INC-PV202200132059

PATIENT
  Age: 95 Year
  Sex: Female
  Weight: 48.2 kg

DRUGS (1)
  1. PAXLOVID [Suspect]
     Active Substance: NIRMATRELVIR\RITONAVIR
     Indication: Coronavirus infection
     Dosage: 3 DF, 2X/DAY (EVERY 12 HRS)
     Route: 048
     Dates: start: 20221221, end: 20221226

REACTIONS (1)
  - Extra dose administered [Recovered/Resolved]

NARRATIVE: CASE EVENT DATE: 20221222
